FAERS Safety Report 8382677-1 (Version None)
Quarter: 2012Q2

REPORT INFORMATION
  Report Type: 
  Country: None (occurrence: None)
  Receive Date: 20120524
  Receipt Date: 20120516
  Transmission Date: 20120825
  Serious: Yes (Other)
  Sender: FDA-Public Use
  Company Number: JP-PFIZER INC-2012118435

PATIENT
  Age: 74 Year
  Sex: Male

DRUGS (1)
  1. XALATAN [Suspect]
     Dosage: UNK
     Route: 047

REACTIONS (2)
  - CYSTOID MACULAR OEDEMA [None]
  - VISUAL ACUITY REDUCED [None]
